FAERS Safety Report 4748555-1 (Version None)
Quarter: 2005Q3

REPORT INFORMATION
  Report Type: 
  Country: None (occurrence: None)
  Receive Date: 20050819
  Receipt Date: 20050714
  Transmission Date: 20060218
  Serious: Yes (Hospitalization)
  Sender: FDA-Public Use
  Company Number: JP-SOLVAY-00305002276

PATIENT
  Age: 7276 Day
  Sex: Female
  Weight: 40 kg

DRUGS (4)
  1. LIORESAL [Concomitant]
     Indication: HYPERTONIA
     Dosage: DAILY DOSE: 15 MILLIGRAM(S)
     Route: 048
     Dates: start: 20030619
  2. LUVOX [Suspect]
     Indication: ANXIETY
     Dosage: DAILY DOSE: 50 MILLIGRAM(S)
     Route: 048
     Dates: start: 20030619, end: 20050628
  3. CERCINE [Concomitant]
     Indication: HYPERTONIA
     Dosage: DAILY DOSE: 15 MILLIGRAM(S)
     Route: 048
     Dates: start: 20030619
  4. BISOLVON [Concomitant]
     Indication: COUGH
     Dosage: DAILY DOSE: 2 MILLILITRE(S); INHALATION
     Route: 065
     Dates: start: 20030619

REACTIONS (1)
  - NEUROLEPTIC MALIGNANT SYNDROME [None]
